FAERS Safety Report 4820161-X (Version None)
Quarter: 2005Q4

REPORT INFORMATION
  Report Type: 
  Country: None (occurrence: None)
  Receive Date: 20051104
  Receipt Date: 20051019
  Transmission Date: 20060501
  Serious: Yes (Other)
  Sender: FDA-Public Use
  Company Number: NLWYE069819OCT05

PATIENT
  Age: 81 Year
  Sex: Male

DRUGS (3)
  1. ENBREL [Suspect]
     Indication: PSORIASIS
     Route: 058
     Dates: start: 20051009, end: 20051019
  2. INSULIN [Concomitant]
     Indication: DIABETES MELLITUS
     Route: 065
  3. ASCAL [Concomitant]
     Indication: VASCULAR DEMENTIA
     Route: 065

REACTIONS (11)
  - BLOOD GLUCOSE FLUCTUATION [None]
  - CHILLS [None]
  - DECREASED APPETITE [None]
  - DIARRHOEA [None]
  - NAUSEA [None]
  - PALLOR [None]
  - PETECHIAE [None]
  - POVERTY OF SPEECH [None]
  - SOMNOLENCE [None]
  - SPEECH DISORDER [None]
  - TRANSIENT ISCHAEMIC ATTACK [None]
